FAERS Safety Report 8251762-7 (Version None)
Quarter: 2012Q2

REPORT INFORMATION
  Report Type: 
  Country: None (occurrence: None)
  Receive Date: 20120402
  Receipt Date: 20120329
  Transmission Date: 20120825
  Serious: No
  Sender: FDA-Public Use
  Company Number: US-PFIZER INC-2012065103

PATIENT
  Sex: Female

DRUGS (4)
  1. ZOLOFT [Concomitant]
     Dosage: UNK
  2. PANTOPRAZOLE [Concomitant]
     Indication: GASTRITIS
     Dosage: UNK
  3. CHANTIX [Suspect]
     Indication: SMOKING CESSATION THERAPY
     Dosage: 0.5 MG, 1X/DAY
     Route: 048
     Dates: start: 20120304, end: 20120301
  4. CHANTIX [Suspect]
     Dosage: 0.5 MG, 2X/DAY
     Route: 048
     Dates: start: 20120301, end: 20120311

REACTIONS (3)
  - BREAST SWELLING [None]
  - BREAST DISORDER [None]
  - SWELLING [None]
